FAERS Safety Report 4542211-0 (Version None)
Quarter: 2004Q4

REPORT INFORMATION
  Report Type: 
  Country: None (occurrence: None)
  Receive Date: 20041230
  Receipt Date: 20041202
  Transmission Date: 20050328
  Serious: Yes (Death, Hospitalization)
  Sender: FDA-Public Use
  Company Number: FR-BRISTOL-MYERS SQUIBB COMPANY-12787925

PATIENT
  Age: 77 Year
  Sex: Male

DRUGS (5)
  1. ERBITUX [Suspect]
     Indication: COLORECTAL CANCER
     Route: 042
     Dates: start: 20041110
  2. CAMPTOSAR [Suspect]
     Indication: COLORECTAL CANCER
     Route: 042
     Dates: start: 20041110
  3. DURAGESIC [Concomitant]
  4. TILDIEM [Concomitant]
     Route: 048
  5. PERMIXON [Concomitant]
     Route: 048

REACTIONS (6)
  - INFLAMMATION [None]
  - LYMPH NODE TUBERCULOSIS [None]
  - LYMPHANGIOSIS CARCINOMATOSA [None]
  - PNEUMONITIS [None]
  - RESPIRATORY DISTRESS [None]
  - THERAPY NON-RESPONDER [None]
